FAERS Safety Report 9282823 (Version 1)
Quarter: 2013Q2

REPORT INFORMATION
  Report Type: Spontaneous
  Country: CA (occurrence: CA)
  Receive Date: 20130510
  Receipt Date: 20130510
  Transmission Date: 20140414
  Serious: Yes (Hospitalization, Other)
  Sender: FDA-Public Use
  Company Number: CA-PFIZER INC-2013141122

PATIENT
  Age: 46 Year
  Sex: Female

DRUGS (1)
  1. CELEBREX [Suspect]
     Indication: ANTIINFLAMMATORY THERAPY
     Dosage: 200 MG, 2X/DAY WITH FOOD
     Dates: start: 20041127

REACTIONS (4)
  - Peripheral artery thrombosis [Unknown]
  - Peripheral artery thrombosis [Unknown]
  - Peripheral artery thrombosis [Unknown]
  - Gangrene [Unknown]
